FAERS Safety Report 7041665-8 (Version None)
Quarter: 2010Q4

REPORT INFORMATION
  Report Type: 
  Country: None (occurrence: None)
  Receive Date: 20101013
  Receipt Date: 20101008
  Transmission Date: 20110411
  Serious: Yes (Other)
  Sender: FDA-Public Use
  Company Number: CA-ROCHE-731040

PATIENT
  Age: 29 Year
  Sex: Male

DRUGS (3)
  1. NAPROSYN [Suspect]
     Indication: DACTYLITIS
     Dosage: CO-INDICATION: HEADACHE
     Route: 048
     Dates: start: 20100905, end: 20100901
  2. NAPROSYN [Suspect]
     Route: 048
     Dates: start: 20100921
  3. PROSCAR [Suspect]
     Route: 065

REACTIONS (1)
  - UVEITIS [None]
